FAERS Safety Report 13284608 (Version 1)
Quarter: 2017Q1

REPORT INFORMATION
  Report Type: Spontaneous
  Country: CN (occurrence: CN)
  Receive Date: 20170301
  Receipt Date: 20170301
  Transmission Date: 20170428
  Serious: Yes (Life-Threatening)
  Sender: FDA-Public Use
  Company Number: CN-FRESENIUS KABI-FK201701573

PATIENT
  Age: 51 Year
  Sex: Male
  Weight: 75 kg

DRUGS (3)
  1. LOW MOLECULAR WEIGHT DEXTRAN [Suspect]
     Active Substance: DEXTRAN
     Indication: NUTRITIONAL SUPPLEMENTATION
     Route: 042
     Dates: start: 20161214, end: 20161214
  2. AMINO ACID INJECTION [Suspect]
     Active Substance: AMINO ACIDS
     Indication: NUTRITIONAL SUPPLEMENTATION
     Route: 042
     Dates: start: 20161214, end: 20161214
  3. VOLUVEN [Suspect]
     Active Substance: HYDROXYETHYL STARCH 130/0.4
     Indication: FLUID REPLACEMENT
     Route: 042
     Dates: start: 20161214, end: 20161214

REACTIONS (1)
  - Anaphylactic shock [Recovering/Resolving]

NARRATIVE: CASE EVENT DATE: 20161214
